FAERS Safety Report 13590570 (Version 2)
Quarter: 2017Q3

REPORT INFORMATION
  Report Type: Spontaneous
  Country: US (occurrence: US)
  Receive Date: 20170529
  Receipt Date: 20170816
  Transmission Date: 20171127
  Serious: No
  Sender: FDA-Public Use
  Company Number: US-LEO PHARMA-303094

PATIENT
  Sex: Female

DRUGS (3)
  1. CARAC [Concomitant]
     Active Substance: FLUOROURACIL
     Indication: PRODUCT USED FOR UNKNOWN INDICATION
  2. PICATO [Suspect]
     Active Substance: INGENOL MEBUTATE
     Indication: ACTINIC KERATOSIS
  3. PICATO [Suspect]
     Active Substance: INGENOL MEBUTATE

REACTIONS (6)
  - Drug effect incomplete [Unknown]
  - Application site vesicles [Recovered/Resolved]
  - Inappropriate schedule of drug administration [Unknown]
  - Application site scab [Recovered/Resolved]
  - Impaired healing [Recovered/Resolved]
  - Application site pain [Recovered/Resolved]
